FAERS Safety Report 4595616-6 (Version None)
Quarter: 2005Q1

REPORT INFORMATION
  Report Type: 
  Country: None (occurrence: None)
  Receive Date: 20050224
  Receipt Date: 20050204
  Transmission Date: 20050727
  Serious: Yes (Death, Hospitalization, Disabling)
  Sender: FDA-Public Use
  Company Number: WAES 0409USA01019

PATIENT
  Age: 98 Year
  Sex: Female

DRUGS (3)
  1. COZAAR [Suspect]
     Indication: HYPERTENSION
     Dosage: 50 MG/DAILY
     Route: 048
     Dates: start: 20010307, end: 20031209
  2. LASIX [Concomitant]
  3. LOXONIN [Concomitant]

REACTIONS (7)
  - ACUTE MYOCARDIAL INFARCTION [None]
  - ELECTROCARDIOGRAM LOW VOLTAGE [None]
  - ELECTROCARDIOGRAM PQ INTERVAL PROLONGED [None]
  - ELECTROCARDIOGRAM PR PROLONGATION [None]
  - ELECTROCARDIOGRAM ST SEGMENT ELEVATION [None]
  - FAECAL INCONTINENCE [None]
  - SHOCK [None]
